FAERS Safety Report 5286557-X (Version None)
Quarter: 2007Q2

REPORT INFORMATION
  Report Type: 
  Country: None (occurrence: None)
  Receive Date: 20070404
  Receipt Date: 20070327
  Transmission Date: 20071010
  Serious: Yes (Hospitalization)
  Sender: FDA-Public Use
  Company Number: FR-ELI_LILLY_AND_COMPANY-FR200703003566

PATIENT
  Age: 56 Year
  Sex: Male
  Weight: 72 kg

DRUGS (6)
  1. GEMZAR [Suspect]
     Indication: BILE DUCT CANCER
     Dosage: 1800 MG, OTHER
     Route: 042
     Dates: start: 20060707
  2. LASIX [Concomitant]
     Dosage: UNK, UNKNOWN
     Route: 065
  3. SOLU-MEDROL [Concomitant]
     Dosage: UNK, UNKNOWN
     Route: 065
  4. ZOPHREN [Concomitant]
     Dosage: UNK, UNKNOWN
     Route: 065
  5. DELURSAN [Concomitant]
     Dosage: UNK, UNKNOWN
     Route: 065
  6. NEURONTIN [Concomitant]
     Dosage: UNK, UNKNOWN
     Route: 065

REACTIONS (8)
  - ANAEMIA [None]
  - CONFUSIONAL STATE [None]
  - FALL [None]
  - JAUNDICE [None]
  - PYREXIA [None]
  - SUBDURAL HAEMORRHAGE [None]
  - THROMBOCYTOPENIA [None]
  - WHITE BLOOD CELL COUNT INCREASED [None]
